FAERS Safety Report 8816461 (Version 1)
Quarter: 2012Q4

REPORT INFORMATION
  Report Type: Spontaneous
  Country: US (occurrence: None)
  Receive Date: 20120928
  Receipt Date: 20120928
  Transmission Date: 20130627
  Serious: Yes (Other)
  Sender: FDA-Public Use
  Company Number: None

PATIENT
  Age: 30 Year
  Sex: Female
  Weight: 66 kg

DRUGS (4)
  1. AVEENO POSITIVELY AGELESS COMPLETE [Suspect]
     Indication: DRY SKIN MOISTURIZING
     Dosage: prescribed dose,2x, Topical
     Route: 061
     Dates: start: 20120617, end: 20120618
  2. BIOSIL [Concomitant]
  3. BIOTIN [Concomitant]
  4. IRON SUPPLEMENT [Concomitant]

REACTIONS (2)
  - Hypotension [None]
  - Hypersensitivity [None]
